FAERS Safety Report 17195367 (Version 3)
Quarter: 2020Q3

REPORT INFORMATION
  Report Type: Report from Study
  Country: None (occurrence: NL)
  Receive Date: 20191224
  Receipt Date: 20200729
  Transmission Date: 20201102
  Serious: No
  Sender: FDA-Public Use
  Company Number: NL-ABBVIE-18K-114-2426254-00

PATIENT
  Age: 73 Year
  Sex: Female

DRUGS (6)
  1. DUODOPA [Suspect]
     Active Substance: CARBIDOPA\LEVODOPA
     Route: 050
  2. MACROGOL [Concomitant]
     Active Substance: POLYETHYLENE GLYCOLS
     Indication: ABNORMAL FAECES
  3. DUODOPA [Suspect]
     Active Substance: CARBIDOPA\LEVODOPA
     Indication: PARKINSON^S DISEASE
     Route: 050
     Dates: start: 20130514
  4. DUODOPA [Suspect]
     Active Substance: CARBIDOPA\LEVODOPA
     Dosage: MD: 3.0, CD: 4.2, ED: 2.0, CND: 3.8?24 HOUR ADMINISTRATION
     Route: 050
  5. BISACODYL. [Concomitant]
     Active Substance: BISACODYL
     Indication: ABNORMAL FAECES
  6. RIVASTIGMINE. [Concomitant]
     Active Substance: RIVASTIGMINE
     Indication: PARKINSON^S DISEASE
     Dosage: 9.5 MG/24 HOURS
     Route: 062
     Dates: start: 20200224

REACTIONS (20)
  - Mobility decreased [Not Recovered/Not Resolved]
  - Therapeutic product effect variable [Recovered/Resolved]
  - Speech disorder [Recovered/Resolved]
  - Mastication disorder [Not Recovered/Not Resolved]
  - Urinary tract infection [Recovered/Resolved]
  - Memory impairment [Not Recovered/Not Resolved]
  - Urinary tract infection [Not Recovered/Not Resolved]
  - Stoma site erythema [Recovered/Resolved]
  - On and off phenomenon [Not Recovered/Not Resolved]
  - Therapeutic product effect incomplete [Not Recovered/Not Resolved]
  - Nasopharyngitis [Not Recovered/Not Resolved]
  - Hallucination [Recovered/Resolved]
  - Cystitis [Recovering/Resolving]
  - Dyschezia [Not Recovered/Not Resolved]
  - Tension [Not Recovered/Not Resolved]
  - Infrequent bowel movements [Unknown]
  - Asthenia [Not Recovered/Not Resolved]
  - Stoma site discharge [Not Recovered/Not Resolved]
  - Dyskinesia [Not Recovered/Not Resolved]
  - Musculoskeletal stiffness [Not Recovered/Not Resolved]

NARRATIVE: CASE EVENT DATE: 20180618
